FAERS Safety Report 4268691-6 (Version None)
Quarter: 2004Q1

REPORT INFORMATION
  Report Type: 
  Country: None (occurrence: None)
  Receive Date: 20040108
  Receipt Date: 20040102
  Transmission Date: 20041129
  Serious: Yes (Hospitalization)
  Sender: FDA-Public Use
  Company Number: 2003188319US

PATIENT
  Age: 75 Year
  Sex: Male

DRUGS (1)
  1. BEXTRA [Suspect]
     Indication: EXOSTOSIS
     Dosage: 20 MG
     Dates: start: 20031101

REACTIONS (3)
  - AKINESIA [None]
  - DYSPNOEA [None]
  - FAECES DISCOLOURED [None]
